FAERS Safety Report 6446800-8 (Version None)
Quarter: 2009Q4

REPORT INFORMATION
  Report Type: 
  Country: None (occurrence: None)
  Receive Date: 20091119
  Receipt Date: 20091109
  Transmission Date: 20100525
  Serious: Yes (Hospitalization)
  Sender: FDA-Public Use
  Company Number: PHHY2009MX49030

PATIENT
  Age: 80 Year
  Sex: Female

DRUGS (4)
  1. ACLASTA [Suspect]
     Indication: OSTEOPOROSIS
     Dosage: 1 AMPOULE 5 MG/100 ML PER YEAR
     Route: 042
     Dates: start: 20071101
  2. ATACAND [Concomitant]
  3. VENALOT (TROXERUTIN/COUMARIN) [Concomitant]
  4. ASPIRIN [Concomitant]

REACTIONS (3)
  - CATARACT OPERATION [None]
  - HIP FRACTURE [None]
  - HIP SURGERY [None]
